FAERS Safety Report 4489447-5 (Version None)
Quarter: 2004Q4

REPORT INFORMATION
  Report Type: 
  Country: None (occurrence: None)
  Receive Date: 20041028
  Receipt Date: 20041018
  Transmission Date: 20050328
  Serious: Yes (Other)
  Sender: FDA-Public Use
  Company Number: HQ8270607JUL2000

PATIENT
  Age: 41 Year
  Sex: Male

DRUGS (7)
  1. RAPAMUNE [Suspect]
     Indication: RENAL TRANSPLANT
     Dosage: 2 MG 1X PER 1 DAY ORAL
     Route: 048
     Dates: start: 19990317
  2. CYCLOSPORINE [Suspect]
     Indication: IMMUNOSUPPRESSION
     Dosage: 175 MG 1X PER 1 DAY ORAL
     Route: 048
     Dates: start: 19990316
  3. METHYLPREDNISOLONE [Suspect]
     Indication: IMMUNOSUPPRESSION
     Dosage: ORAL
     Route: 048
     Dates: start: 19990319
  4. CHLORAMPHENICOL [Concomitant]
  5. METOPROLOL TARTRATE [Concomitant]
  6. ATORVASTATIN (ATORVASTATIN) [Concomitant]
  7. NYSTATIN [Concomitant]

REACTIONS (2)
  - GLOMERULONEPHRITIS [None]
  - RENAL CELL CARCINOMA STAGE UNSPECIFIED [None]
